FAERS Safety Report 19160454 (Version 4)
Quarter: 2021Q2

REPORT INFORMATION
  Report Type: Spontaneous
  Country: JP (occurrence: JP)
  Receive Date: 20210421
  Receipt Date: 20210512
  Transmission Date: 20210717
  Serious: Yes (Death, Life-Threatening, Other)
  Sender: FDA-Public Use
  Company Number: JP-SA-2021SA127336

PATIENT
  Age: 80 Year
  Sex: Male

DRUGS (4)
  1. JEVTANA [Suspect]
     Active Substance: CABAZITAXEL
     Dosage: 1 TIME/ 3?4 WEEKS
     Route: 041
     Dates: end: 20210405
  2. G LASTA [Concomitant]
     Active Substance: PEGFILGRASTIM
     Indication: PRODUCT USED FOR UNKNOWN INDICATION
     Dosage: 24 HOURS AFTER JEVTANA ADMINISTRATION
     Route: 065
  3. PREDONINE [Concomitant]
     Active Substance: PREDNISOLONE
     Indication: PRODUCT USED FOR UNKNOWN INDICATION
     Dosage: DAILY DOSING
     Route: 065
  4. JEVTANA [Suspect]
     Active Substance: CABAZITAXEL
     Indication: PROSTATE CANCER
     Dosage: 30 MG/BODY
     Route: 041
     Dates: start: 20210222, end: 20210222

REACTIONS (10)
  - C-reactive protein increased [Unknown]
  - Febrile neutropenia [Not Recovered/Not Resolved]
  - Blood creatinine increased [Unknown]
  - Feeding disorder [Unknown]
  - Septic shock [Fatal]
  - Immobile [Fatal]
  - Pancytopenia [Fatal]
  - Multiple organ dysfunction syndrome [Fatal]
  - Malaise [Unknown]
  - Decreased appetite [Unknown]

NARRATIVE: CASE EVENT DATE: 202104
